FAERS Safety Report 10016739 (Version 1)
Quarter: 2014Q1

REPORT INFORMATION
  Report Type: Report from Study
  Country: NL (occurrence: NL)
  Receive Date: 20140318
  Receipt Date: 20140318
  Transmission Date: 20141002
  Serious: Yes (Other)
  Sender: FDA-Public Use
  Company Number: PHHY2014NL030876

PATIENT
  Age: 70 Year
  Sex: Male

DRUGS (10)
  1. ZOMETA [Suspect]
     Indication: PROSTATE CANCER METASTATIC
     Dosage: 4 MG, ONCE EVERY 4 WEEKS
     Route: 042
  2. ZOMETA [Suspect]
     Dosage: UNK UKN, UNK
     Dates: start: 20120814
  3. ZOMETA [Suspect]
     Dosage: UNK UKN, UNK
     Dates: start: 20140211
  4. ZOMETA [Suspect]
     Dosage: UNK UKN, UNK
     Dates: start: 20140311
  5. ZYTIGA [Concomitant]
     Dosage: 250 MG, 4 X
  6. PREDNISOLONE [Concomitant]
     Dosage: 5 MG, 2 X
  7. MINRIN [Concomitant]
     Dosage: 60 UG, 1 X
  8. FENTANYL [Concomitant]
     Dosage: 75 UG, UNK
  9. FENPROCOUMON [Concomitant]
     Dosage: 3 MG, UNK
  10. METOPROLOL [Concomitant]
     Dosage: 50 MG, 1 X

REACTIONS (4)
  - Suicidal ideation [Unknown]
  - Major depression [Not Recovered/Not Resolved]
  - Depressed mood [Unknown]
  - Crying [Unknown]
